FAERS Safety Report 14138320 (Version 4)
Quarter: 2018Q4

REPORT INFORMATION
  Report Type: Spontaneous
  Country: US (occurrence: US)
  Receive Date: 20171027
  Receipt Date: 20181029
  Transmission Date: 20190204
  Serious: No
  Sender: FDA-Public Use
  Company Number: US-LUNDBECK-DKLU2038780

PATIENT
  Age: 86 Year
  Sex: Female

DRUGS (4)
  1. NORTHERA [Suspect]
     Active Substance: DROXIDOPA
     Indication: ORTHOSTATIC HYPOTENSION
     Route: 065
     Dates: start: 20171018
  2. NORTHERA [Suspect]
     Active Substance: DROXIDOPA
     Indication: PARKINSON^S DISEASE
     Route: 048
     Dates: start: 20171011
  3. NORTHERA [Suspect]
     Active Substance: DROXIDOPA
     Route: 048
     Dates: end: 20180129
  4. NORTHERA [Suspect]
     Active Substance: DROXIDOPA
     Route: 048

REACTIONS (15)
  - Chest pain [Unknown]
  - Syncope [Unknown]
  - Nervousness [Unknown]
  - Eye movement disorder [Unknown]
  - Oropharyngeal pain [Unknown]
  - Cough [Unknown]
  - Heart rate increased [Unknown]
  - Feeling abnormal [Unknown]
  - Blood pressure diastolic increased [Recovering/Resolving]
  - Emotional disorder [Recovering/Resolving]
  - Dysphonia [Unknown]
  - Hyperkeratosis [Unknown]
  - Heart rate irregular [Unknown]
  - Agitation [Unknown]
  - Hypertension [Unknown]

NARRATIVE: CASE EVENT DATE: 20171012
